FAERS Safety Report 9578083 (Version 1)
Quarter: 2013Q4

REPORT INFORMATION
  Report Type: Spontaneous
  Country: US (occurrence: US)
  Receive Date: 20131001
  Receipt Date: 20131001
  Transmission Date: 20140711
  Serious: No
  Sender: FDA-Public Use
  Company Number: US-AMGEN-USASP2013011236

PATIENT
  Sex: Female

DRUGS (9)
  1. ENBREL [Suspect]
     Indication: RHEUMATOID ARTHRITIS
     Dosage: 50 MG, 2 TIMES/WK
     Route: 058
  2. LYRICA [Concomitant]
     Dosage: 75 MG, UNK
  3. METHOTREXATE [Concomitant]
     Dosage: 20 MG, UNK
  4. FOLIC ACID [Concomitant]
     Dosage: UNK
  5. PROZAC [Concomitant]
     Dosage: 20 MG, UNK
  6. WELLBUTRIN XL [Concomitant]
     Dosage: 300 MG, UNK
  7. LAMICTAL [Concomitant]
     Dosage: 200 MG, UNK
  8. HALCION [Concomitant]
     Dosage: 0.25 MG, UNK
  9. NEURONTIN [Concomitant]
     Dosage: 600 MG, UNK

REACTIONS (1)
  - Drug ineffective [Unknown]
